FAERS Safety Report 8723206 (Version 5)
Quarter: 2013Q1

REPORT INFORMATION
  Report Type: Spontaneous
  Country: US (occurrence: US)
  Receive Date: 20120814
  Receipt Date: 20130326
  Transmission Date: 20140127
  Serious: No
  Sender: FDA-Public Use
  Company Number: US-ASTRAZENECA-2012SE50312

PATIENT
  Age: 72 Year
  Sex: Female

DRUGS (3)
  1. CRESTOR [Suspect]
     Indication: BLOOD CHOLESTEROL INCREASED
     Route: 048
  2. LIPITOR [Concomitant]
  3. METFORMIN [Concomitant]

REACTIONS (7)
  - Weight decreased [Unknown]
  - Cardiac disorder [Unknown]
  - Renal hypertension [Unknown]
  - Eye infection [Unknown]
  - Diabetes mellitus [Unknown]
  - Diabetes mellitus inadequate control [Unknown]
  - Intentional drug misuse [Unknown]
